FAERS Safety Report 8178088-4 (Version None)
Quarter: 2012Q1

REPORT INFORMATION
  Report Type: 
  Country: None (occurrence: None)
  Receive Date: 20120301
  Receipt Date: 20120223
  Transmission Date: 20120608
  Serious: Yes (Hospitalization)
  Sender: FDA-Public Use
  Company Number: US-BAYER-201026340NA

PATIENT
  Age: 31 Year
  Sex: Female
  Weight: 110.66 kg

DRUGS (6)
  1. LEXAPRO [Concomitant]
     Dosage: 10 MG, QD
     Route: 048
  2. ALBUTEROL [Concomitant]
     Dosage: UNK UNK, PRN
     Route: 055
  3. CELEXA [Concomitant]
  4. YASMIN [Suspect]
     Indication: CONTRACEPTION
     Route: 048
     Dates: start: 20060101
  5. TOPAMAX [Concomitant]
     Dosage: 75 MG AT HOUR OF SLEEP
     Route: 048
  6. MAXALT [Concomitant]
     Dosage: 10 MG, UNK

REACTIONS (7)
  - PULMONARY EMBOLISM [None]
  - CHOLECYSTITIS ACUTE [None]
  - PLEURITIC PAIN [None]
  - RECTAL HAEMORRHAGE [None]
  - CHOLESTEROSIS [None]
  - CHOLELITHIASIS [None]
  - CHOLECYSTITIS CHRONIC [None]
